FAERS Safety Report 18385863 (Version 2)
Quarter: 2020Q4

REPORT INFORMATION
  Report Type: Spontaneous
  Country: AE (occurrence: AE)
  Receive Date: 20201015
  Receipt Date: 20201230
  Transmission Date: 20210114
  Serious: Yes (Hospitalization)
  Sender: FDA-Public Use
  Company Number: AE-NOVOPROD-758639

PATIENT
  Age: 26 Year
  Sex: Female
  Weight: 70.5 kg

DRUGS (4)
  1. LEVEMIR [Suspect]
     Active Substance: INSULIN DETEMIR
     Dosage: UNK
     Route: 058
     Dates: start: 20200716
  2. LEVEMIR [Suspect]
     Active Substance: INSULIN DETEMIR
     Indication: DIABETES MELLITUS
     Dosage: 20 IU, SINGLE
     Route: 058
     Dates: start: 20200714, end: 20200715
  3. NOVORAPID [Suspect]
     Active Substance: INSULIN ASPART
     Dosage: 20 IU, QD (6 8 6 UNITS BEFORE MEALS  THREE TIMES)
     Route: 058
     Dates: start: 20200714, end: 20200715
  4. NOVORAPID [Suspect]
     Active Substance: INSULIN ASPART
     Indication: DIABETES MELLITUS
     Dosage: UNK
     Route: 065

REACTIONS (3)
  - Premature labour [Unknown]
  - Premature delivery [Recovered/Resolved]
  - Maternal exposure during pregnancy [Recovered/Resolved]

NARRATIVE: CASE EVENT DATE: 202007
